FAERS Safety Report 9649592 (Version 2)
Quarter: 2013Q4

REPORT INFORMATION
  Report Type: Spontaneous
  Country: HR (occurrence: HR)
  Receive Date: 20131028
  Receipt Date: 20131105
  Transmission Date: 20140711
  Serious: No
  Sender: FDA-Public Use
  Company Number: HR-009507513-1310HRV009281

PATIENT
  Sex: 0

DRUGS (1)
  1. JANUMET 50 MG/850 MG FILMOM OBLOZENE TABLETE [Suspect]
     Dosage: UNK
     Route: 048

REACTIONS (1)
  - Angina pectoris [Not Recovered/Not Resolved]
